FAERS Safety Report 22017111 (Version 5)
Quarter: 2023Q4

REPORT INFORMATION
  Report Type: Spontaneous
  Country: DE (occurrence: DE)
  Receive Date: 20230221
  Receipt Date: 20231010
  Transmission Date: 20240110
  Serious: Yes (Other)
  Sender: FDA-Public Use
  Company Number: DE-SA-SAC20221208001205

PATIENT

DRUGS (92)
  1. DICLOFENAC DIETHYLAMINE [Suspect]
     Active Substance: DICLOFENAC DIETHYLAMINE
     Indication: Product used for unknown indication
     Dosage: UNK
     Route: 065
  2. DICLOFENAC DIETHYLAMINE [Suspect]
     Active Substance: DICLOFENAC DIETHYLAMINE
     Indication: Product used for unknown indication
     Dosage: UNK
     Route: 065
  3. IBUPROFEN [Suspect]
     Active Substance: IBUPROFEN
     Indication: Product used for unknown indication
     Dosage: UNK
     Route: 065
  4. CALCIUM CARBONATE [Suspect]
     Active Substance: CALCIUM CARBONATE
     Indication: Product used for unknown indication
     Dosage: UNK
     Route: 065
  5. BISOPROLOL [Suspect]
     Active Substance: BISOPROLOL\BISOPROLOL FUMARATE
     Indication: Product used for unknown indication
     Dosage: UNK UNK, QD
     Route: 065
  6. ROSUVASTATIN CALCIUM [Suspect]
     Active Substance: ROSUVASTATIN CALCIUM
     Indication: Product used for unknown indication
     Dosage: UNK
     Route: 065
  7. RIVAROXABAN [Suspect]
     Active Substance: RIVAROXABAN
     Indication: Product used for unknown indication
     Dosage: UNK
     Route: 065
  8. MOMETASONE FUROATE [Suspect]
     Active Substance: MOMETASONE FUROATE
     Indication: Product used for unknown indication
     Dosage: UNK
     Route: 065
  9. TAMSULOSIN HYDROCHLORIDE [Suspect]
     Active Substance: TAMSULOSIN HYDROCHLORIDE
     Indication: Product used for unknown indication
     Dosage: UNK
     Route: 065
  10. ALBUTEROL SULFATE [Suspect]
     Active Substance: ALBUTEROL SULFATE
     Indication: Pneumothorax
     Dosage: UNK
     Route: 065
  11. ALBUTEROL SULFATE [Suspect]
     Active Substance: ALBUTEROL SULFATE
     Indication: Chest discomfort
  12. ALBUTEROL SULFATE [Suspect]
     Active Substance: ALBUTEROL SULFATE
     Indication: Secretion discharge
  13. ALBUTEROL SULFATE [Suspect]
     Active Substance: ALBUTEROL SULFATE
     Indication: Dysphonia
  14. ALBUTEROL SULFATE [Suspect]
     Active Substance: ALBUTEROL SULFATE
     Indication: Pneumothorax
  15. ALBUTEROL SULFATE [Suspect]
     Active Substance: ALBUTEROL SULFATE
     Indication: Cough
  16. ALBUTEROL SULFATE [Suspect]
     Active Substance: ALBUTEROL SULFATE
     Indication: Nasopharyngitis
  17. ALBUTEROL SULFATE [Suspect]
     Active Substance: ALBUTEROL SULFATE
     Indication: Productive cough
  18. ALBUTEROL SULFATE [Suspect]
     Active Substance: ALBUTEROL SULFATE
     Indication: Dyspnoea
  19. TADALAFIL [Suspect]
     Active Substance: TADALAFIL
     Indication: Product used for unknown indication
     Dosage: UNK
     Route: 065
  20. BIOTIN [Suspect]
     Active Substance: BIOTIN
     Indication: Product used for unknown indication
     Dosage: 1 DF, QD
     Route: 065
  21. BIOTIN [Suspect]
     Active Substance: BIOTIN
     Dosage: UNK
     Route: 065
  22. ASPIRIN [Suspect]
     Active Substance: ASPIRIN
     Indication: Product used for unknown indication
     Dosage: UNK
     Route: 065
  23. CLOPIDOGREL BISULFATE [Suspect]
     Active Substance: CLOPIDOGREL BISULFATE
     Indication: Product used for unknown indication
     Dosage: UNK
     Route: 065
  24. CLOPIDOGREL BISULFATE [Suspect]
     Active Substance: CLOPIDOGREL BISULFATE
     Dosage: UNK
     Route: 065
  25. ERGOCALCIFEROL [Suspect]
     Active Substance: ERGOCALCIFEROL
     Indication: Product used for unknown indication
     Dosage: 2000 IU, WE
     Route: 065
  26. ERGOCALCIFEROL [Suspect]
     Active Substance: ERGOCALCIFEROL
     Dosage: UNK UNK, WE
     Route: 065
  27. MAGNESIUM ASPARTATE\POTASSIUM ASPARTATE [Suspect]
     Active Substance: MAGNESIUM ASPARTATE\POTASSIUM ASPARTATE
     Indication: Product used for unknown indication
     Dosage: UNK
     Route: 065
  28. MAGNESIUM ASPARTATE\POTASSIUM ASPARTATE [Suspect]
     Active Substance: MAGNESIUM ASPARTATE\POTASSIUM ASPARTATE
     Dosage: UNK
     Route: 065
  29. COLESEVELAM HYDROCHLORIDE [Suspect]
     Active Substance: COLESEVELAM HYDROCHLORIDE
     Indication: Product used for unknown indication
     Dosage: UNK
     Route: 065
  30. AMBROXOL HYDROCHLORIDE [Suspect]
     Active Substance: AMBROXOL HYDROCHLORIDE
     Indication: Product used for unknown indication
     Dosage: 2 DF
     Route: 065
  31. PHENYL AMINOSALICYLATE [Suspect]
     Active Substance: PHENYL AMINOSALICYLATE
     Indication: Product used for unknown indication
     Dosage: UNK
     Route: 065
  32. XARELTO [Suspect]
     Active Substance: RIVAROXABAN
     Indication: Product used for unknown indication
     Dosage: UNK
     Route: 065
  33. ASPIRIN CALCIUM [Suspect]
     Active Substance: ASPIRIN CALCIUM
     Indication: Product used for unknown indication
     Dosage: UNK
     Route: 065
  34. TOCOPHEROL [Suspect]
     Active Substance: TOCOPHEROL
     Indication: Product used for unknown indication
     Dosage: 2000 IU, QD
     Route: 065
  35. TOCOPHEROL [Suspect]
     Active Substance: TOCOPHEROL
     Dosage: 2000 IU, WE
     Route: 065
  36. FLOMAX [Suspect]
     Active Substance: TAMSULOSIN HYDROCHLORIDE
     Indication: Product used for unknown indication
     Dosage: UNK
     Route: 065
  37. OLMESARTAN MEDOXOMIL [Suspect]
     Active Substance: OLMESARTAN MEDOXOMIL
     Indication: Product used for unknown indication
     Dosage: 500 IU, BID (Q12H)
     Route: 065
  38. OLMESARTAN MEDOXOMIL [Suspect]
     Active Substance: OLMESARTAN MEDOXOMIL
     Dosage: 1000 IU, BID (Q12H)
     Route: 065
  39. HERBALS [Suspect]
     Active Substance: HERBALS
     Indication: Product used for unknown indication
     Dosage: UNK
     Route: 065
  40. GINKGO [Suspect]
     Active Substance: GINKGO
     Indication: Product used for unknown indication
     Dosage: UNK
     Route: 065
  41. REPATHA [Suspect]
     Active Substance: EVOLOCUMAB
     Indication: Product used for unknown indication
     Dosage: UNK UNK, WE
     Route: 065
  42. CIALIS [Suspect]
     Active Substance: TADALAFIL
     Indication: Product used for unknown indication
     Dosage: UNK
     Route: 065
  43. ATROVENT [Suspect]
     Active Substance: IPRATROPIUM BROMIDE
     Indication: Cough
     Dosage: UNK
     Dates: start: 2018, end: 2018
  44. ATROVENT [Suspect]
     Active Substance: IPRATROPIUM BROMIDE
     Indication: Nasopharyngitis
  45. ATROVENT [Suspect]
     Active Substance: IPRATROPIUM BROMIDE
     Indication: Pneumothorax
  46. ATROVENT [Suspect]
     Active Substance: IPRATROPIUM BROMIDE
     Indication: Secretion discharge
  47. ATROVENT [Suspect]
     Active Substance: IPRATROPIUM BROMIDE
     Indication: Nasopharyngitis
  48. ATROVENT [Suspect]
     Active Substance: IPRATROPIUM BROMIDE
     Indication: Pneumothorax
  49. ATROVENT [Suspect]
     Active Substance: IPRATROPIUM BROMIDE
     Indication: Dyspnoea
  50. ATROVENT [Suspect]
     Active Substance: IPRATROPIUM BROMIDE
     Indication: Secretion discharge
  51. ATROVENT [Suspect]
     Active Substance: IPRATROPIUM BROMIDE
     Indication: Chest discomfort
  52. ATROVENT [Suspect]
     Active Substance: IPRATROPIUM BROMIDE
     Indication: Dysphonia
  53. MAGNESIUM OROTATE [Suspect]
     Active Substance: MAGNESIUM OROTATE
     Indication: Product used for unknown indication
     Dosage: UNK
     Route: 065
  54. DIETARY SUPPLEMENT [Suspect]
     Active Substance: DIETARY SUPPLEMENT
     Indication: Product used for unknown indication
     Dosage: UNK
     Route: 065
  55. MAGNESIUM OROTATE [Suspect]
     Active Substance: MAGNESIUM OROTATE
     Indication: Product used for unknown indication
     Dosage: UNK
     Route: 065
  56. PRALUENT [Suspect]
     Active Substance: ALIROCUMAB
     Indication: Product used for unknown indication
     Dosage: UNK
     Route: 065
  57. CALCIUM PANTOTHENATE [Suspect]
     Active Substance: CALCIUM PANTOTHENATE
     Indication: Product used for unknown indication
     Dosage: UNK UNK, TID (IN 8 HOUR)
  58. MAGNESIUM ASPARTATE\POTASSIUM ASPARTATE [Suspect]
     Active Substance: MAGNESIUM ASPARTATE\POTASSIUM ASPARTATE
     Indication: Product used for unknown indication
     Dosage: UNK
     Route: 065
  59. MOMETASONE FUROATE [Suspect]
     Active Substance: MOMETASONE FUROATE
     Indication: Product used for unknown indication
     Dosage: UNK UNK, QD
     Route: 045
  60. MOMETASONE FUROATE [Suspect]
     Active Substance: MOMETASONE FUROATE
     Dosage: 1 GTT, BID (1 DRP IN 0.5 DAY)
     Route: 045
  61. MOMETASONE FUROATE [Suspect]
     Active Substance: MOMETASONE FUROATE
     Dosage: UNK UNK, QD
     Route: 045
  62. MOMETASONE [Concomitant]
     Active Substance: MOMETASONE
     Indication: Product used for unknown indication
     Dosage: UNK
     Route: 065
  63. FLUTICASONE PROPIONATE\SALMETEROL XINAFOATE [Concomitant]
     Active Substance: FLUTICASONE PROPIONATE\SALMETEROL XINAFOATE
     Indication: Dyspnoea
     Dosage: UNK
     Route: 065
     Dates: start: 2018, end: 2018
  64. FLUTICASONE PROPIONATE\SALMETEROL XINAFOATE [Concomitant]
     Active Substance: FLUTICASONE PROPIONATE\SALMETEROL XINAFOATE
     Indication: Secretion discharge
  65. FLUTICASONE PROPIONATE\SALMETEROL XINAFOATE [Concomitant]
     Active Substance: FLUTICASONE PROPIONATE\SALMETEROL XINAFOATE
     Indication: Dysphonia
  66. FLUTICASONE PROPIONATE\SALMETEROL XINAFOATE [Concomitant]
     Active Substance: FLUTICASONE PROPIONATE\SALMETEROL XINAFOATE
     Indication: Cough
  67. FLUTICASONE PROPIONATE\SALMETEROL XINAFOATE [Concomitant]
     Active Substance: FLUTICASONE PROPIONATE\SALMETEROL XINAFOATE
     Indication: Pneumothorax
  68. SALMETEROL XINAFOATE [Concomitant]
     Active Substance: SALMETEROL XINAFOATE
     Indication: Chest discomfort
     Dosage: UNK
     Dates: start: 2018, end: 2018
  69. SALMETEROL XINAFOATE [Concomitant]
     Active Substance: SALMETEROL XINAFOATE
     Indication: Secretion discharge
     Dosage: UNK
  70. SALMETEROL XINAFOATE [Concomitant]
     Active Substance: SALMETEROL XINAFOATE
     Indication: Dysphonia
  71. SALMETEROL XINAFOATE [Concomitant]
     Active Substance: SALMETEROL XINAFOATE
     Indication: Dyspnoea
  72. SALMETEROL XINAFOATE [Concomitant]
     Active Substance: SALMETEROL XINAFOATE
     Indication: Nasopharyngitis
  73. SALMETEROL XINAFOATE [Concomitant]
     Active Substance: SALMETEROL XINAFOATE
     Indication: Cough
  74. CRESTOR [Concomitant]
     Active Substance: ROSUVASTATIN CALCIUM
     Indication: Product use in unapproved indication
     Dosage: UNK
     Route: 065
  75. VITAMIN E [Concomitant]
     Active Substance: .ALPHA.-TOCOPHEROL
     Indication: Product used for unknown indication
     Dosage: UNK, Q2W
     Route: 065
  76. VITAMIN E [Concomitant]
     Active Substance: .ALPHA.-TOCOPHEROL
     Dosage: UNK, Q2W
     Route: 065
  77. REPATHA [Concomitant]
     Active Substance: EVOLOCUMAB
     Indication: Product used for unknown indication
     Dosage: 1 DF, WE
     Route: 065
  78. REPATHA [Concomitant]
     Active Substance: EVOLOCUMAB
     Dosage: 1 DF, WE
     Route: 065
  79. REPATHA [Concomitant]
     Active Substance: EVOLOCUMAB
     Dosage: 1 DF, WE
     Route: 065
  80. REPATHA [Concomitant]
     Active Substance: EVOLOCUMAB
     Dosage: 1 DF (IN 56 HOUR)
     Route: 065
  81. MAGNESIUM ASPARTATE [Concomitant]
     Active Substance: MAGNESIUM ASPARTATE
     Indication: Product used for unknown indication
     Dosage: 2 DF
     Route: 065
  82. DICLOFENAC [Concomitant]
     Active Substance: DICLOFENAC
     Indication: Product used for unknown indication
     Dosage: UNK
     Route: 065
  83. AMBROXOL HYDROCHLORIDE [Concomitant]
     Active Substance: AMBROXOL HYDROCHLORIDE
     Indication: Product used for unknown indication
     Dosage: UNK
     Route: 065
  84. CALCIUM [Concomitant]
     Active Substance: CALCIUM
     Indication: Product used for unknown indication
     Dosage: UNK
     Route: 065
  85. DICLOFENAC [Concomitant]
     Active Substance: DICLOFENAC
     Indication: Product used for unknown indication
     Dosage: UNK
     Route: 065
  86. EVOLOCUMAB [Concomitant]
     Active Substance: EVOLOCUMAB
     Indication: Product used for unknown indication
     Dosage: UNK
     Route: 065
  87. VOTUM [Concomitant]
     Indication: Product used for unknown indication
     Dosage: UNK
     Route: 065
  88. BISOPROLOL FUMARATE [Concomitant]
     Active Substance: BISOPROLOL FUMARATE
     Indication: Product used for unknown indication
     Dosage: 1 DF, QD
     Route: 065
  89. PREDNISOLONE [Concomitant]
     Active Substance: PREDNISOLONE
     Indication: Product used for unknown indication
     Dosage: UNK
     Route: 065
  90. CLOPIDOGREL [Concomitant]
     Active Substance: CLOPIDOGREL BISULFATE
     Indication: Product used for unknown indication
     Dosage: UNK
     Route: 065
  91. ASPIRIN CALCIUM [Concomitant]
     Active Substance: ASPIRIN CALCIUM
     Indication: Product used for unknown indication
     Dosage: UNK
     Route: 065
  92. OLMESARTAN MEDOXOMIL [Concomitant]
     Active Substance: OLMESARTAN MEDOXOMIL
     Indication: Product used for unknown indication
     Dosage: UNK
     Route: 065

REACTIONS (22)
  - Atrial fibrillation [Recovered/Resolved]
  - Pneumothorax [Not Recovered/Not Resolved]
  - Brain natriuretic peptide increased [Unknown]
  - Nasopharyngitis [Unknown]
  - Coronary artery disease [Unknown]
  - Dyspnoea [Unknown]
  - Dyspnoea exertional [Unknown]
  - Sensation of foreign body [Unknown]
  - Chest discomfort [Unknown]
  - Exostosis [Unknown]
  - Plantar fasciitis [Unknown]
  - Dysphonia [Not Recovered/Not Resolved]
  - Obstructive airways disorder [Unknown]
  - Secretion discharge [Unknown]
  - Myoglobin blood increased [Unknown]
  - Fractional exhaled nitric oxide increased [Unknown]
  - Obstructive sleep apnoea syndrome [Unknown]
  - Cough [Not Recovered/Not Resolved]
  - Cardiac disorder [Not Recovered/Not Resolved]
  - Eosinophilia [Unknown]
  - Muscle spasms [Unknown]
  - Wheezing [Unknown]

NARRATIVE: CASE EVENT DATE: 20180101
